FAERS Safety Report 4464963-0 (Version None)
Quarter: 2004Q4

REPORT INFORMATION
  Report Type: 
  Country: None (occurrence: None)
  Receive Date: 20041004
  Receipt Date: 20040415
  Transmission Date: 20050328
  Serious: No
  Sender: FDA-Public Use
  Company Number: 368171

PATIENT
  Age: 82 Year
  Sex: Male

DRUGS (10)
  1. COREG [Suspect]
     Dosage: 12.5MG TWICE PER DAY
     Route: 048
     Dates: start: 20040127
  2. MULTI-VITAMIN [Concomitant]
  3. PLAVIX [Concomitant]
  4. LIPITOR [Concomitant]
  5. NORVASC [Concomitant]
  6. NIASPAN [Concomitant]
  7. ASPIRIN [Concomitant]
  8. HUMULIN R [Concomitant]
  9. FOSAMAX [Concomitant]
  10. LANTUS [Concomitant]

REACTIONS (5)
  - BEDRIDDEN [None]
  - DYSPNOEA [None]
  - INSOMNIA [None]
  - THINKING ABNORMAL [None]
  - WEIGHT DECREASED [None]
